FAERS Safety Report 8988762 (Version 1)
Quarter: 2012Q4

REPORT INFORMATION
  Report Type: Spontaneous
  Country: IT (occurrence: None)
  Receive Date: 20121219
  Receipt Date: 20121219
  Transmission Date: 20130627
  Serious: Yes (Hospitalization)
  Sender: FDA-Public Use
  Company Number: 2012120055

PATIENT
  Sex: Male

DRUGS (3)
  1. MESALAZINE [Suspect]
     Indication: ULCERATIVE COLITIS
     Dosage: bedtime)
     Route: 054
     Dates: start: 20100402, end: 20100422
  2. MESALAZINE [Suspect]
     Indication: ULCERATIVE COLITIS
     Dosage: once
     Route: 054
     Dates: start: 20120402, end: 20100422
  3. MESALAZINE [Suspect]
     Indication: ULCERATIVE COLITIS
     Dosage: 800 mg, 3 in 1 D)
     Route: 048
     Dates: start: 20110315, end: 20110405

REACTIONS (10)
  - Sinus tachycardia [None]
  - Electrocardiogram T wave inversion [None]
  - Dilatation ventricular [None]
  - Ventricular hypokinesia [None]
  - Ejection fraction decreased [None]
  - Mitral valve incompetence [None]
  - Myocarditis [None]
  - Colitis [None]
  - Disease recurrence [None]
  - Allergic myocarditis [None]
